FAERS Safety Report 7107215-2 (Version None)
Quarter: 2010Q4

REPORT INFORMATION
  Report Type: 
  Country: None (occurrence: None)
  Receive Date: 20101116
  Receipt Date: 20100915
  Transmission Date: 20110411
  Serious: No
  Sender: FDA-Public Use
  Company Number: US-ABBOTT-10P-163-0670880-00

PATIENT
  Sex: Female
  Weight: 95.34 kg

DRUGS (9)
  1. SIMCOR [Suspect]
     Indication: DYSLIPIDAEMIA
     Dosage: 750/20MG AT BED TIME
     Route: 048
  2. SIMCOR [Suspect]
     Dosage: 750/20MG AT BED TIME
  3. ACTOPLUS MET [Suspect]
     Indication: PRODUCT USED FOR UNKNOWN INDICATION
     Dosage: 15-500MG
     Route: 048
  4. ACTOPLUS MET [Suspect]
     Dosage: 15-500MG
  5. VICTOZA [Concomitant]
     Indication: PRODUCT USED FOR UNKNOWN INDICATION
     Route: 050
  6. SPIRONOLACTONE [Concomitant]
     Indication: PRODUCT USED FOR UNKNOWN INDICATION
     Route: 048
  7. VITAMIN B-12 [Concomitant]
     Indication: PRODUCT USED FOR UNKNOWN INDICATION
     Route: 048
  8. VITAMIN D [Concomitant]
     Indication: PRODUCT USED FOR UNKNOWN INDICATION
     Route: 048
  9. HERBAL LAXATIVE [Concomitant]
     Indication: PRODUCT USED FOR UNKNOWN INDICATION
     Route: 048

REACTIONS (5)
  - BACK PAIN [None]
  - CONSTIPATION [None]
  - ERYTHEMA [None]
  - FATIGUE [None]
  - FLUSHING [None]
